FAERS Safety Report 20803183 (Version 2)
Quarter: 2022Q3

REPORT INFORMATION
  Report Type: Spontaneous
  Country: JP (occurrence: JP)
  Receive Date: 20220509
  Receipt Date: 20220823
  Transmission Date: 20221027
  Serious: Yes (Other)
  Sender: FDA-Public Use
  Company Number: JP-UCBJ-CD202203918UCBPHAPROD

PATIENT

DRUGS (1)
  1. CIMZIA [Suspect]
     Active Substance: CERTOLIZUMAB PEGOL
     Indication: Psoriasis
     Dosage: UNK
     Route: 058

REACTIONS (5)
  - Cellulitis [Unknown]
  - Arthralgia [Unknown]
  - Rash [Unknown]
  - Palmoplantar pustulosis [Unknown]
  - Therapeutic response decreased [Unknown]
